FAERS Safety Report 10004771 (Version 2)
Quarter: 2014Q3

REPORT INFORMATION
  Report Type: Spontaneous
  Country: FR (occurrence: FR)
  Receive Date: 20140312
  Receipt Date: 20140911
  Transmission Date: 20150326
  Serious: Yes (Hospitalization)
  Sender: FDA-Public Use
  Company Number: FR-GLAXOSMITHKLINE-B0974248A

PATIENT
  Age: 65 Year
  Sex: Male

DRUGS (17)
  1. PYOSTACINE [Suspect]
     Active Substance: PRISTINAMYCIN
     Indication: INFECTION
     Dosage: 1G THREE TIMES PER DAY
     Route: 048
     Dates: start: 20140203, end: 20140210
  2. HUMIRA [Suspect]
     Active Substance: ADALIMUMAB
     Indication: RHEUMATIC DISORDER
     Dosage: 40MG WEEKLY
     Route: 058
     Dates: end: 20140215
  3. PREDNISONE. [Concomitant]
     Active Substance: PREDNISONE
     Dosage: 15MG PER DAY
     Route: 065
  4. RASILEZ [Suspect]
     Active Substance: ALISKIREN
     Indication: HYPERTENSION
     Dosage: 150MG PER DAY
     Route: 048
     Dates: start: 201401, end: 20140217
  5. METHOTREXATE [Suspect]
     Active Substance: METHOTREXATE
     Indication: RHEUMATIC DISORDER
     Dosage: 20MG WEEKLY
     Route: 058
     Dates: start: 2006, end: 20140215
  6. PIVALONE [Suspect]
     Active Substance: TIXOCORTOL PIVALATE
     Indication: RHINITIS
     Dosage: 2UNIT PER DAY
     Route: 045
     Dates: start: 20140203, end: 20140208
  7. TRAMADOL [Concomitant]
     Active Substance: TRAMADOL
     Dosage: 50MG AS REQUIRED
     Route: 048
  8. LANTUS [Concomitant]
     Active Substance: INSULIN GLARGINE
     Dosage: 54IU PER DAY
     Route: 065
  9. COLCHICINE. [Suspect]
     Active Substance: COLCHICINE
     Indication: ARTHRITIS
     Route: 048
     Dates: start: 201312, end: 20140215
  10. FUROSEMIDE. [Concomitant]
     Active Substance: FUROSEMIDE
     Dosage: 40MG PER DAY
  11. DAFALGAN [Concomitant]
     Active Substance: ACETAMINOPHEN
     Indication: PAIN
     Route: 048
  12. MONOTILDIEM LP [Concomitant]
     Active Substance: DILTIAZEM HYDROCHLORIDE
     Dosage: 300G PER DAY
     Route: 048
  13. NOVORAPID [Concomitant]
     Active Substance: INSULIN ASPART
     Route: 065
  14. HYPERIUM [Concomitant]
     Active Substance: RILMENIDINE PHOSPHATE
     Dosage: 1MG TWICE PER DAY
     Route: 048
  15. FLUIMUCIL [Suspect]
     Active Substance: ACETYLCYSTEINE
     Indication: COUGH
     Dosage: 200MG THREE TIMES PER DAY
     Route: 048
     Dates: start: 20140203, end: 20140208
  16. INEXIUM [Concomitant]
     Active Substance: ESOMEPRAZOLE
     Dosage: 40MG PER DAY
     Route: 048
  17. MALARONE [Suspect]
     Active Substance: ATOVAQUONE\PROGUANIL HYDROCHLORIDE
     Indication: MALARIA PROPHYLAXIS
     Route: 048
     Dates: start: 201401, end: 20140210

REACTIONS (3)
  - Petechiae [Unknown]
  - Thrombocytopenia [Recovered/Resolved]
  - Intra-abdominal haematoma [Unknown]

NARRATIVE: CASE EVENT DATE: 20140210
